FAERS Safety Report 17962096 (Version 6)
Quarter: 2022Q2

REPORT INFORMATION
  Report Type: Spontaneous
  Country: US (occurrence: US)
  Receive Date: 20200630
  Receipt Date: 20220613
  Transmission Date: 20220721
  Serious: Yes (Death, Other)
  Sender: FDA-Public Use
  Company Number: US-PFIZER INC-2020250439

PATIENT
  Age: 79 Year
  Sex: Female

DRUGS (1)
  1. XELJANZ XR [Suspect]
     Active Substance: TOFACITINIB CITRATE
     Dosage: 11 MG, DAILY

REACTIONS (5)
  - Death [Fatal]
  - Dementia Alzheimer^s type [Unknown]
  - Fungal infection [Unknown]
  - Urinary tract infection [Unknown]
  - Illness [Unknown]

NARRATIVE: CASE EVENT DATE: 20220507
